FAERS Safety Report 5774454-2 (Version None)
Quarter: 2008Q2

REPORT INFORMATION
  Report Type: 
  Country: None (occurrence: None)
  Receive Date: 20080616
  Receipt Date: 20080605
  Transmission Date: 20081010
  Serious: Yes (Other)
  Sender: FDA-Public Use
  Company Number: US-PFIZER INC-2008048038

PATIENT
  Sex: Female
  Weight: 59 kg

DRUGS (4)
  1. GEODON [Suspect]
     Indication: ANXIETY
  2. GEODON [Suspect]
     Indication: OBSESSIVE-COMPULSIVE DISORDER
  3. LISINOPRIL [Concomitant]
  4. ATIVAN [Concomitant]

REACTIONS (3)
  - ANXIETY [None]
  - MUSCLE TIGHTNESS [None]
  - OBSESSIVE-COMPULSIVE DISORDER [None]
